FAERS Safety Report 6438570-4 (Version None)
Quarter: 2009Q4

REPORT INFORMATION
  Report Type: 
  Country: None (occurrence: None)
  Receive Date: 20091112
  Receipt Date: 20091014
  Transmission Date: 20100525
  Serious: No
  Sender: FDA-Public Use
  Company Number: US-ALLERGAN-0914267US

PATIENT
  Sex: Female

DRUGS (3)
  1. COMBIGAN [Suspect]
     Indication: GLAUCOMA
     Dosage: UNK
     Route: 047
     Dates: start: 20091008
  2. TRAMADOL HCL [Concomitant]
     Dosage: UNK
  3. BUT/APAP/CAF [Concomitant]
     Dosage: 50/325/40

REACTIONS (1)
  - HEADACHE [None]
